FAERS Safety Report 9661628 (Version 2)
Quarter: 2013Q4

REPORT INFORMATION
  Report Type: Spontaneous
  Country: US (occurrence: US)
  Receive Date: 20131031
  Receipt Date: 20131031
  Transmission Date: 20140711
  Serious: No
  Sender: FDA-Public Use
  Company Number: US-PURDUE-USA-2010-0055297

PATIENT
  Age: 46 Year
  Sex: Male

DRUGS (3)
  1. OXYCONTIN (NDA 22-272) [Suspect]
     Indication: PAIN
     Dosage: 160 MG, AC + HS
     Dates: start: 20100902, end: 20100928
  2. OXYCONTIN (NDA 22-272) [Suspect]
     Indication: ARTHRITIS
  3. OXYCONTIN (NDA 22-272) [Suspect]
     Indication: OSTEOARTHRITIS

REACTIONS (17)
  - Drug withdrawal syndrome [Recovered/Resolved]
  - Medication residue present [Unknown]
  - Nasal congestion [Unknown]
  - Rhinorrhoea [Unknown]
  - Malaise [Unknown]
  - Constipation [Unknown]
  - Hyperhidrosis [Unknown]
  - Tremor [Unknown]
  - Headache [Recovered/Resolved]
  - Cold sweat [Unknown]
  - Drug ineffective [Unknown]
  - Nausea [Recovered/Resolved]
  - Abdominal pain upper [Recovered/Resolved]
  - Vomiting [Recovered/Resolved]
  - Unevaluable event [Unknown]
  - Abdominal discomfort [Unknown]
  - Drug effect decreased [Recovered/Resolved]
